FAERS Safety Report 8834311 (Version 4)
Quarter: 2018Q3

REPORT INFORMATION
  Report Type: Spontaneous
  Country: US (occurrence: US)
  Receive Date: 20121010
  Receipt Date: 20180803
  Transmission Date: 20181010
  Serious: Yes (Death, Other)
  Sender: FDA-Public Use
  Company Number: US-009507513-1009USA03227

PATIENT
  Age: 24 Year
  Sex: Female

DRUGS (3)
  1. INTELENCE [Suspect]
     Active Substance: ETRAVIRINE
     Indication: HIV INFECTION
     Dosage: 400 MG, QD
     Route: 048
  2. EPZICOM [Suspect]
     Active Substance: ABACAVIR SULFATE\LAMIVUDINE
     Indication: HIV INFECTION
     Dosage: UNK, QD
     Route: 048
  3. ISENTRESS [Suspect]
     Active Substance: RALTEGRAVIR POTASSIUM
     Indication: HIV INFECTION
     Dosage: 800 MG, QD
     Route: 048

REACTIONS (7)
  - Disseminated intravascular coagulation [Fatal]
  - Intestinal ischaemia [Fatal]
  - Haemorrhage [Fatal]
  - Respiratory failure [Fatal]
  - Injection site pain [Unknown]
  - Maternal exposure before pregnancy [Recovered/Resolved]
  - Stillbirth [Unknown]

NARRATIVE: CASE EVENT DATE: 20100922
